FAERS Safety Report 4882390-9 (Version None)
Quarter: 2005Q4

REPORT INFORMATION
  Report Type: 
  Country: None (occurrence: None)
  Receive Date: 20051201
  Receipt Date: 20050928
  Transmission Date: 20060501
  Serious: No
  Sender: FDA-Public Use
  Company Number: 2005PV002621

PATIENT
  Age: 63 Year
  Sex: Female
  Weight: 85.7298 kg

DRUGS (9)
  1. BYETTA [Suspect]
     Indication: DIABETES MELLITUS NON-INSULIN-DEPENDENT
     Dosage: 5 MCG;BID;SC
     Route: 058
     Dates: start: 20050927
  2. DOXYCYCLINE [Suspect]
     Indication: PHARYNGOLARYNGEAL PAIN
     Dosage: 100 MG;QD;PO
     Route: 048
     Dates: start: 20050923
  3. PLAVIX [Concomitant]
  4. ASPIRIN [Concomitant]
  5. AVANDIA [Concomitant]
  6. LASIX [Concomitant]
  7. DIABETA [Concomitant]
  8. NITROGLYCERIN [Concomitant]
  9. LOMOTIL [Concomitant]

REACTIONS (4)
  - DECREASED APPETITE [None]
  - DIARRHOEA [None]
  - FEELING JITTERY [None]
  - HYPERHIDROSIS [None]
